FAERS Safety Report 6554120-6 (Version None)
Quarter: 2010Q1

REPORT INFORMATION
  Report Type: 
  Country: None (occurrence: None)
  Receive Date: 20100127
  Receipt Date: 20100121
  Transmission Date: 20100710
  Serious: Yes (Hospitalization, Other)
  Sender: FDA-Public Use
  Company Number: DE-BRISTOL-MYERS SQUIBB COMPANY-14942353

PATIENT
  Age: 24 Year
  Sex: Male

DRUGS (4)
  1. ABILIFY [Suspect]
     Indication: SCHIZOPHRENIA
  2. CLOZAPINE [Suspect]
  3. HALDOL [Suspect]
  4. NEUROCIL [Suspect]

REACTIONS (5)
  - AGGRESSION [None]
  - APATHY [None]
  - DELUSION [None]
  - FATIGUE [None]
  - RESTLESSNESS [None]
